FAERS Safety Report 7482944-X (Version None)
Quarter: 2011Q2

REPORT INFORMATION
  Report Type: 
  Country: None (occurrence: None)
  Receive Date: 20110516
  Receipt Date: 20110512
  Transmission Date: 20111010
  Serious: Yes (Hospitalization)
  Sender: FDA-Public Use
  Company Number: FR-PFIZER INC-2010090360

PATIENT
  Age: 15 Year
  Sex: Male
  Weight: 37.1 kg

DRUGS (1)
  1. SOMATROPIN RDNA [Suspect]
     Indication: GROWTH HORMONE DEFICIENCY
     Dosage: 9.60 MG, WEEKLY
     Dates: start: 20081231

REACTIONS (1)
  - ABDOMINAL PAIN [None]
